FAERS Safety Report 6697292-5 (Version None)
Quarter: 2010Q2

REPORT INFORMATION
  Report Type: 
  Country: None (occurrence: None)
  Receive Date: 20100426
  Receipt Date: 20100325
  Transmission Date: 20101027
  Serious: No
  Sender: FDA-Public Use
  Company Number: US-BAYER-201018216NA

PATIENT
  Age: 58 Year
  Sex: Male

DRUGS (2)
  1. ULTRAVIST 300 [Suspect]
     Indication: DRUG USE FOR UNKNOWN INDICATION
     Dosage: AS USED: 100 ML  UNIT DOSE: 100 ML
     Dates: start: 20100325, end: 20100325
  2. DEXAMETHASONE [Concomitant]
     Dosage: AS USED: 4 MG
     Route: 030
     Dates: start: 20100325, end: 20100325

REACTIONS (1)
  - URTICARIA [None]
